FAERS Safety Report 5055333-5 (Version None)
Quarter: 2006Q3

REPORT INFORMATION
  Report Type: 
  Country: None (occurrence: None)
  Receive Date: 20060719
  Receipt Date: 20060606
  Transmission Date: 20061208
  Serious: Yes (Other)
  Sender: FDA-Public Use
  Company Number: 2006UW12550

PATIENT
  Age: 2882 Day
  Sex: Male
  Weight: 25.7 kg

DRUGS (7)
  1. SEROQUEL [Suspect]
     Indication: IMPULSIVE BEHAVIOUR
     Route: 048
     Dates: start: 20050420, end: 20060331
  2. SEROQUEL [Suspect]
     Indication: ANXIETY
     Route: 048
     Dates: start: 20050420, end: 20060331
  3. SEROQUEL [Suspect]
     Indication: ABNORMAL BEHAVIOUR
     Route: 048
     Dates: start: 20050420, end: 20060331
  4. CONCERTA [Concomitant]
     Indication: ATTENTION DEFICIT/HYPERACTIVITY DISORDER
     Route: 048
  5. CLONIDINE [Concomitant]
     Dates: start: 20040503, end: 20060615
  6. RITALIN-SR [Concomitant]
     Indication: ATTENTION DEFICIT/HYPERACTIVITY DISORDER
     Dates: end: 20050101
  7. RISPERDAL [Concomitant]
     Indication: IMPULSIVE BEHAVIOUR
     Dates: start: 20040803, end: 20050420

REACTIONS (3)
  - CATARACT SUBCAPSULAR [None]
  - CORNEAL OPACITY [None]
  - PSEUDOPAPILLOEDEMA [None]
